FAERS Safety Report 23636088 (Version 1)
Quarter: 2024Q1

REPORT INFORMATION
  Report Type: Report from Study
  Country: US (occurrence: US)
  Receive Date: 20240315
  Receipt Date: 20240315
  Transmission Date: 20240409
  Serious: Yes (Hospitalization)
  Sender: FDA-Public Use
  Company Number: US-ACADIA PHARMACEUTICALS INC.-ACA-2024-PIM-001099

PATIENT
  Age: 89 Year
  Sex: Male

DRUGS (19)
  1. NUPLAZID [Suspect]
     Active Substance: PIMAVANSERIN TARTRATE
     Indication: Parkinson^s disease
     Dosage: 34 MILLIGRAM, QD
     Route: 048
     Dates: start: 20220225
  2. NUPLAZID [Suspect]
     Active Substance: PIMAVANSERIN TARTRATE
     Indication: Hallucination
  3. CARBIDOPA LEVODOPA [Concomitant]
     Active Substance: CARBIDOPA\LEVODOPA
     Dosage: 25-100 MILLIGRAM
  4. VOLTAREN [Concomitant]
     Active Substance: DICLOFENAC SODIUM
     Dosage: 75 MILLIGRAM
  5. BENTYL [Concomitant]
     Active Substance: DICYCLOMINE HYDROCHLORIDE
     Dosage: 10 MILLIGRAM
  6. PROSCAR [Concomitant]
     Active Substance: FINASTERIDE
     Dosage: 5 MILLIGRAM
  7. HYDROCHLOROTHIAZIDE [Concomitant]
     Active Substance: HYDROCHLOROTHIAZIDE
     Dosage: 25 MILLIGRAM
  8. ZESTRIL [Concomitant]
     Active Substance: LISINOPRIL
     Dosage: 10 MILLIGRAM
  9. MYRBETRIQ [Concomitant]
     Active Substance: MIRABEGRON
     Dosage: 25 MILLIGRAM
  10. PRILOSEC [Concomitant]
     Active Substance: OMEPRAZOLE MAGNESIUM
     Dosage: 40 MILLIGRAM
  11. KCL [Concomitant]
     Active Substance: POTASSIUM CHLORIDE
     Dosage: 10 MILLIEQUIVALENT
  12. COLACE [Concomitant]
     Active Substance: DOCUSATE SODIUM
     Dosage: 100 MILLIGRAM
  13. ASPIRIN [Concomitant]
     Active Substance: ASPIRIN
     Dosage: 81 MILLIGRAM
  14. AMLODIPINE [Concomitant]
     Active Substance: AMLODIPINE BESYLATE
     Dosage: 5 MILLIGRAM
  15. ROPINIROLE [Concomitant]
     Active Substance: ROPINIROLE
     Dosage: 1 MILLIGRAM
  16. ZOCOR [Concomitant]
     Active Substance: SIMVASTATIN
     Dosage: 10 MILLIGRAM
  17. TAMSULOSIN [Concomitant]
     Active Substance: TAMSULOSIN
     Dosage: 0.4 MILLIGRAM
  18. TRAMADOL [Concomitant]
     Active Substance: TRAMADOL\TRAMADOL HYDROCHLORIDE
     Dosage: 50 MILLIGRAM
  19. GLYCOPYRROLATE [Concomitant]
     Active Substance: GLYCOPYRROLATE
     Dosage: 1 MILLIGRAM

REACTIONS (2)
  - Hypoaesthesia [Unknown]
  - Fall [Unknown]

NARRATIVE: CASE EVENT DATE: 20240214
